FAERS Safety Report 8820694 (Version 2)
Quarter: 2012Q4

REPORT INFORMATION
  Report Type: 
  Country: US (occurrence: US)
  Receive Date: 20121002
  Receipt Date: 20121120
  Transmission Date: 20130627
  Serious: Yes (Other)
  Sender: FDA-Public Use
  Company Number: US-PFIZER INC-2012238853

PATIENT
  Sex: Female

DRUGS (2)
  1. GELFOAM [Suspect]
     Indication: SURGICAL HAEMOSTASIS
     Dosage: UNK
     Dates: start: 20120924
  2. THROMBIN-JMI [Suspect]
     Indication: SURGICAL HAEMOSTASIS
     Dosage: UNK
     Route: 061
     Dates: start: 20120924

REACTIONS (1)
  - Post procedural haematoma [Unknown]
